FAERS Safety Report 4510091-5 (Version None)
Quarter: 2004Q4

REPORT INFORMATION
  Report Type: 
  Country: None (occurrence: None)
  Receive Date: 20041123
  Receipt Date: 20041103
  Transmission Date: 20050328
  Serious: Yes (Other)
  Sender: FDA-Public Use
  Company Number: S04-FIN-06912-01

PATIENT
  Age: 50 Year
  Sex: Female

DRUGS (3)
  1. CIPRALEX (ESCITALOPRAM) [Suspect]
     Indication: DEPRESSION
     Dosage: 10 MG QD PO
     Route: 048
     Dates: start: 20031118, end: 20041001
  2. INDAPAMIDE [Concomitant]
  3. OPAMOX (OXAZEPAM) [Concomitant]

REACTIONS (6)
  - ARRHYTHMIA [None]
  - ATRIAL FIBRILLATION [None]
  - BLOOD PRESSURE INCREASED [None]
  - BRADYCARDIA [None]
  - EXTRASYSTOLES [None]
  - LONG QT SYNDROME [None]
